FAERS Safety Report 5464321-6 (Version None)
Quarter: 2007Q3

REPORT INFORMATION
  Report Type: 
  Country: None (occurrence: None)
  Receive Date: 20070921
  Receipt Date: 20070913
  Transmission Date: 20080115
  Serious: Yes (Hospitalization)
  Sender: FDA-Public Use
  Company Number: US-ELI_LILLY_AND_COMPANY-US200709003053

PATIENT
  Age: 69 Year
  Sex: Male
  Weight: 128.8 kg

DRUGS (17)
  1. HUMALOG [Suspect]
     Indication: TYPE 2 DIABETES MELLITUS
     Dosage: 22 U, OTHER
     Dates: start: 20060626
  2. HUMALOG [Suspect]
     Dosage: 46 U, EACH EVENING
     Dates: start: 20070626
  3. LANTUS [Concomitant]
     Indication: TYPE 2 DIABETES MELLITUS
     Dosage: 75 U, EACH MORNING
     Dates: start: 20050404
  4. COREG [Concomitant]
  5. METHOTREXATE [Concomitant]
  6. HUMIRA [Concomitant]
  7. TIKOSYN [Concomitant]
  8. DIGOXIN [Concomitant]
  9. MONOPRIL [Concomitant]
  10. LIPITOR [Concomitant]
  11. LASIX [Concomitant]
  12. POTASSIUM CHLORIDE [Concomitant]
  13. ZANTAC [Concomitant]
  14. WARFARIN SODIUM [Concomitant]
  15. CENTRUM SILVER [Concomitant]
  16. CALCIUM [Concomitant]
  17. NORVASC [Concomitant]

REACTIONS (5)
  - CHEST PAIN [None]
  - CHOKING [None]
  - DYSPNOEA [None]
  - HYPERHIDROSIS [None]
  - PYREXIA [None]
